FAERS Safety Report 7906342-7 (Version None)
Quarter: 2011Q4

REPORT INFORMATION
  Report Type: 
  Country: None (occurrence: None)
  Receive Date: 20111109
  Receipt Date: 20111109
  Transmission Date: 20120403
  Serious: Yes (Death)
  Sender: FDA-Public Use
  Company Number: None

PATIENT
  Sex: Male
  Weight: 95.2554 kg

DRUGS (6)
  1. METOPRILOL TARTARATE [Concomitant]
  2. SIMVASTATIN [Concomitant]
  3. BUPROPRION HCL [Suspect]
     Indication: DEPRESSION
     Dosage: 150 MG 1X DAILY 1ST WEEK; 2X DAILY 2ND WEEK
  4. LEVOTHYROXINE SODIUM [Concomitant]
  5. LISINOPRIL [Concomitant]
  6. TRAZODONE HCL [Concomitant]

REACTIONS (5)
  - DEPRESSION [None]
  - HEART INJURY [None]
  - INTENTIONAL SELF-INJURY [None]
  - CONDITION AGGRAVATED [None]
  - GUN SHOT WOUND [None]
